FAERS Safety Report 9456413 (Version 3)
Quarter: 2013Q3

REPORT INFORMATION
  Report Type: Report from Study
  Country: US (occurrence: US)
  Receive Date: 20130813
  Receipt Date: 20130917
  Transmission Date: 20140515
  Serious: Yes (Death, Hospitalization)
  Sender: FDA-Public Use
  Company Number: US-ALEXION-A201301856

PATIENT
  Age: 39 Year
  Sex: Male

DRUGS (2)
  1. SOLIRIS [Suspect]
     Indication: PAROXYSMAL NOCTURNAL HAEMOGLOBINURIA
     Dosage: 900 MG, Q2W
     Route: 042
     Dates: start: 20120913, end: 201306
  2. ATG [Concomitant]
     Dosage: UNK

REACTIONS (3)
  - Death [Fatal]
  - Aplastic anaemia [Unknown]
  - Stem cell transplant [Unknown]
